FAERS Safety Report 16677588 (Version 1)
Quarter: 2019Q3

REPORT INFORMATION
  Report Type: Spontaneous
  Country: US (occurrence: US)
  Receive Date: 20190807
  Receipt Date: 20190807
  Transmission Date: 20191004
  Serious: Yes (Other)
  Sender: FDA-Public Use
  Company Number: US-LUPIN HEALTHCARE (UK) LIMITED-2018-07566

PATIENT
  Sex: Female

DRUGS (2)
  1. LEVETIRACETAM TABLETS USP, 250 MG [Suspect]
     Active Substance: LEVETIRACETAM
     Dosage: UNK
     Route: 065
     Dates: start: 20181017
  2. LEVETIRACETAM TABLETS USP, 250 MG [Suspect]
     Active Substance: LEVETIRACETAM
     Indication: SEIZURE
     Dosage: UNK
     Route: 065
     Dates: start: 20180924

REACTIONS (2)
  - Drug ineffective [Unknown]
  - Seizure [Unknown]
